FAERS Safety Report 4451140-2 (Version None)
Quarter: 2004Q3

REPORT INFORMATION
  Report Type: 
  Country: None (occurrence: None)
  Receive Date: 20040913
  Receipt Date: 20040616
  Transmission Date: 20050211
  Serious: No
  Sender: FDA-Public Use
  Company Number: 2004-BP-04780BP(0)

PATIENT
  Age: 46 Year
  Sex: Male

DRUGS (6)
  1. SPIRIVA [Suspect]
     Indication: CHRONIC OBSTRUCTIVE AIRWAYS DISEASE
     Dosage: 18 MCG (18 MCG, 1 IN 1 D), IH
     Dates: start: 20040601
  2. WELLBUTRIN (BUPROPIONATE HYDROCHLORIDE) [Concomitant]
  3. LITHIUM CARBONATE [Concomitant]
  4. PAXIL [Concomitant]
  5. TRAZODONE HCL [Concomitant]
  6. ALBUTEROL [Concomitant]

REACTIONS (1)
  - NECROTISING ULCERATIVE GINGIVOSTOMATITIS [None]
